FAERS Safety Report 8884951 (Version 4)
Quarter: 2013Q1

REPORT INFORMATION
  Report Type: Report from Study
  Country: AU (occurrence: AU)
  Receive Date: 20121102
  Receipt Date: 20130118
  Transmission Date: 20140127
  Serious: Yes (Hospitalization)
  Sender: FDA-Public Use
  Company Number: AU-BAYER-2012-111950

PATIENT
  Age: 60 Year
  Sex: Male
  Weight: 93 kg

DRUGS (12)
  1. REGORAFENIB [Suspect]
     Indication: COLORECTAL CANCER METASTATIC
     Dosage: DAILY DOSE 160 MG
     Route: 048
     Dates: start: 20120906, end: 20120926
  2. REGORAFENIB [Suspect]
     Indication: COLORECTAL CANCER METASTATIC
     Dosage: 160 MG, QD
     Route: 048
     Dates: start: 20121004, end: 20121015
  3. COVERSYL [Concomitant]
     Indication: HYPERTENSION
     Dosage: DAILY DOSE 6 MG
     Route: 048
     Dates: start: 20121002, end: 20121004
  4. PERINDOPRIL [Concomitant]
     Indication: HYPERTENSION
     Dosage: 4 MG MANE
     Route: 048
     Dates: start: 20121002, end: 20121016
  5. PANTOPRAZOLE [Concomitant]
     Indication: NAUSEA
     Dosage: 40 MG MANE
     Route: 048
     Dates: start: 20120731, end: 20121016
  6. HALOPERIDOL [Concomitant]
     Indication: NAUSEA
     Dosage: 0.5 MG MANE 2 MG NOCTE
     Route: 048
     Dates: start: 20120731, end: 20121016
  7. HYDROMORPHONE [Concomitant]
     Indication: BACK PAIN
     Dosage: 32 MG NOCTE
     Route: 048
     Dates: start: 2008, end: 20121016
  8. HYDROMORPHONE [Concomitant]
     Indication: ABDOMINAL PAIN
     Dosage: 8 MG, PRN
     Route: 048
     Dates: start: 2012, end: 20121016
  9. ONDANSETRON [Concomitant]
     Indication: VOMITING
     Dosage: 4 MG TDS PRN
     Route: 048
     Dates: start: 20121011, end: 20121016
  10. STEMETIL [Concomitant]
     Indication: CONSTIPATION
     Dosage: 25 MG, PRN
     Route: 054
     Dates: start: 20120731, end: 20121016
  11. MOVICOL [Concomitant]
     Indication: CONSTIPATION
     Dosage: 2 SACHETS TDS
     Route: 048
     Dates: start: 20121011, end: 20121016
  12. COLOXYL WITH SENNA [Concomitant]
     Indication: CONSTIPATION
     Dosage: 2 TABLETS BD
     Route: 048
     Dates: start: 20121011, end: 20121016

REACTIONS (2)
  - Urinary tract infection bacterial [Recovering/Resolving]
  - Ascites [Not Recovered/Not Resolved]
